FAERS Safety Report 14204632 (Version 1)
Quarter: 2017Q4

REPORT INFORMATION
  Report Type: Spontaneous
  Country: US (occurrence: None)
  Receive Date: 20171118
  Receipt Date: 20171118
  Transmission Date: 20180321
  Serious: Yes (Hospitalization)
  Sender: FDA-Public Use
  Company Number: None

PATIENT
  Age: 50 Year
  Sex: Male

DRUGS (6)
  1. RANITIDINE. [Concomitant]
     Active Substance: RANITIDINE
  2. VITAMIN D3 [Concomitant]
     Active Substance: CHOLECALCIFEROL
  3. NEURO -TF(B6/B12) [Concomitant]
  4. AUGMENTIN [Suspect]
     Active Substance: AMOXICILLIN\CLAVULANATE POTASSIUM
     Dates: start: 20140514, end: 20140615
  5. ZETIA [Concomitant]
     Active Substance: EZETIMIBE
  6. INSULIN [Concomitant]
     Active Substance: INSULIN NOS

REACTIONS (11)
  - Asthenia [None]
  - Cholestasis [None]
  - Biliary tract disorder [None]
  - Cholangitis [None]
  - Drug-induced liver injury [None]
  - Fatigue [None]
  - Hepatitis B e antibody positive [None]
  - Pruritus [None]
  - Jaundice [None]
  - Faeces discoloured [None]
  - Hepatic enzyme abnormal [None]

NARRATIVE: CASE EVENT DATE: 20140707
